FAERS Safety Report 8338493-X (Version None)
Quarter: 2012Q1

REPORT INFORMATION
  Report Type: 
  Country: None (occurrence: None)
  Receive Date: 20120329
  Receipt Date: 20081215
  Transmission Date: 20120608
  Serious: Yes (Other)
  Sender: FDA-Public Use
  Company Number: PHEH2008US11089

PATIENT
  Age: 82 Year
  Sex: Female

DRUGS (1)
  1. EXELON [Suspect]
     Indication: DEMENTIA
     Dosage: 4.6 , QD : 9.5, QD
     Dates: start: 20081001

REACTIONS (5)
  - DELUSION [None]
  - DISEASE PROGRESSION [None]
  - DEMENTIA [None]
  - WEIGHT DECREASED [None]
  - ACTIVITIES OF DAILY LIVING IMPAIRED [None]
